FAERS Safety Report 7685542-8 (Version None)
Quarter: 2011Q3

REPORT INFORMATION
  Report Type: 
  Country: None (occurrence: None)
  Receive Date: 20110816
  Receipt Date: 20110811
  Transmission Date: 20111222
  Serious: Yes (Other)
  Sender: FDA-Public Use
  Company Number: CA-PFIZER INC-2011127409

PATIENT
  Age: 88 Year
  Sex: Female
  Weight: 70.748 kg

DRUGS (8)
  1. GENTEAL [Concomitant]
     Indication: DRY EYE
     Dosage: TAKEN VERY OFTEN
  2. TYLENOL-500 [Concomitant]
     Indication: PAIN
  3. B12 ^RECIP^ [Concomitant]
     Dosage: BY INJECTION
  4. XALATAN [Suspect]
     Indication: GLAUCOMA
     Dosage: 1 GTT, 1X/DAY AT NIGHT BEDTIME
     Route: 047
     Dates: start: 20100204
  5. XALATAN [Suspect]
     Indication: RETINAL OPERATION
  6. VITALUX [Concomitant]
     Indication: EYE DISORDER
  7. TYLENOL-500 [Concomitant]
     Indication: ARTHRITIS
     Dosage: 650 MG, UP TO 6 PER DAY AS NEEDED
  8. VITALUX [Concomitant]
     Indication: MACULAR DEGENERATION
     Dosage: 1 CAP AM AND PM

REACTIONS (11)
  - CEREBROVASCULAR ACCIDENT [None]
  - MUCOSAL DRYNESS [None]
  - HYPOAESTHESIA [None]
  - SENSORY LOSS [None]
  - DRY EYE [None]
  - THIRST [None]
  - APTYALISM [None]
  - EYE IRRITATION [None]
  - FINGER DEFORMITY [None]
  - EYE DISORDER [None]
  - EYE PAIN [None]
